FAERS Safety Report 4355810-6 (Version None)
Quarter: 2004Q2

REPORT INFORMATION
  Report Type: 
  Country: None (occurrence: None)
  Receive Date: 20040505
  Receipt Date: 20040429
  Transmission Date: 20050107
  Serious: Yes (Hospitalization)
  Sender: FDA-Public Use
  Company Number: USA-2004-0014884

PATIENT
  Age: 38 Year
  Sex: Male

DRUGS (1)
  1. OXYCONTIN [Suspect]
     Indication: PAIN
     Dosage: 80 MG, Q8H,
     Dates: start: 20030101

REACTIONS (7)
  - CELLULITIS [None]
  - CONFUSIONAL STATE [None]
  - LETHARGY [None]
  - OSTEOMYELITIS [None]
  - PYREXIA [None]
  - REBOUND EFFECT [None]
  - STAPHYLOCOCCAL INFECTION [None]
